FAERS Safety Report 14851693 (Version 1)
Quarter: 2018Q2

REPORT INFORMATION
  Report Type: Report from Study
  Country: US (occurrence: US)
  Receive Date: 20180507
  Receipt Date: 20180507
  Transmission Date: 20180711
  Serious: Yes (Hospitalization)
  Sender: FDA-Public Use
  Company Number: US-ROCHE-2113701

PATIENT
  Age: 49 Year
  Sex: Female
  Weight: 72.9 kg

DRUGS (2)
  1. LIPOSOMAL DOXORUBICIN [Suspect]
     Active Substance: DOXORUBICIN HYDROCHLORIDE
     Indication: OVARIAN CANCER
     Dosage: MOST RECENT DOSE OF LIPOSOMAL DOXORUBICIN (74MG) RECEIVED ON 23/MAR/2018 PRIOR TO EVENT ONSET.
     Route: 042
     Dates: start: 20180126
  2. ATEZOLIZUMAB. [Suspect]
     Active Substance: ATEZOLIZUMAB
     Indication: OVARIAN CANCER
     Dosage: MOST RECENT DOSE OF TEZOLIZUMAB RECEIVED ON 06/APR/2018 PRIOR TO EVENT ONSET.
     Route: 042
     Dates: start: 20180126

REACTIONS (1)
  - Febrile neutropenia [Recovered/Resolved]

NARRATIVE: CASE EVENT DATE: 20180413
